FAERS Safety Report 8048698-3 (Version None)
Quarter: 2012Q1

REPORT INFORMATION
  Report Type: 
  Country: None (occurrence: None)
  Receive Date: 20120117
  Receipt Date: 20120109
  Transmission Date: 20120608
  Serious: Yes (Hospitalization)
  Sender: FDA-Public Use
  Company Number: US-BAYER-2010-002180

PATIENT
  Age: 33 Year
  Sex: Female
  Weight: 58.05 kg

DRUGS (6)
  1. YASMIN [Suspect]
     Dosage: UNK
     Dates: start: 20040101, end: 20050501
  2. CALNATE [Concomitant]
  3. TOPAMAX [Concomitant]
     Dosage: 25MG IN AM AND 50MG IN PM
  4. LIPITOR [Concomitant]
     Indication: BLOOD CHOLESTEROL INCREASED
  5. COUMADIN [Concomitant]
     Dosage: UNK
     Dates: start: 20050101
  6. PREDNISONE [Concomitant]

REACTIONS (2)
  - CEREBROVASCULAR ACCIDENT [None]
  - THROMBOSIS [None]
